FAERS Safety Report 10203252 (Version 1)
Quarter: 2014Q2

REPORT INFORMATION
  Report Type: Report from Study
  Country: US (occurrence: US)
  Receive Date: 20140529
  Receipt Date: 20140529
  Transmission Date: 20141212
  Serious: Yes (Other)
  Sender: FDA-Public Use
  Company Number: US-ROCHE-1408981

PATIENT
  Sex: Female
  Weight: 45 kg

DRUGS (5)
  1. NUTROPIN AQ [Suspect]
     Indication: BODY HEIGHT BELOW NORMAL
     Route: 058
     Dates: start: 20130529, end: 201310
  2. NUTROPIN AQ [Suspect]
     Route: 058
     Dates: start: 201310, end: 201405
  3. NUTROPIN AQ [Suspect]
     Route: 058
     Dates: start: 201405
  4. PRILOSEC [Concomitant]
     Dosage: 1 CAPSULE BY MOUTH
     Route: 048
  5. FIBER TABS [Concomitant]
     Dosage: 2 TABLETS BY MOUTH
     Route: 048

REACTIONS (5)
  - Abdominal pain upper [Unknown]
  - Headache [Unknown]
  - Nausea [Unknown]
  - Motion sickness [Unknown]
  - Diarrhoea [Unknown]
